FAERS Safety Report 16356335 (Version 1)
Quarter: 2019Q2

REPORT INFORMATION
  Report Type: Spontaneous
  Country: CN (occurrence: CN)
  Receive Date: 20190527
  Receipt Date: 20190527
  Transmission Date: 20190711
  Serious: Yes (Other)
  Sender: FDA-Public Use
  Company Number: CN-ROCHE-2318646

PATIENT
  Age: 54 Year
  Sex: Female
  Weight: 34 kg

DRUGS (6)
  1. MEDICINAL CARBON [Concomitant]
     Indication: CHRONIC KIDNEY DISEASE
     Dosage: DF= TABLETS
     Route: 048
  2. MEDICINAL CARBON [Concomitant]
     Indication: OFF LABEL USE
     Dosage: DF=TABLET
     Route: 048
  3. CALCITRIOL. [Concomitant]
     Active Substance: CALCITRIOL
     Indication: OFF LABEL USE
  4. CAPECITABINE. [Suspect]
     Active Substance: CAPECITABINE
     Indication: HYPERPARATHYROIDISM SECONDARY
     Route: 048
  5. CAPECITABINE. [Suspect]
     Active Substance: CAPECITABINE
     Indication: OFF LABEL USE
     Route: 048
  6. CALCITRIOL. [Concomitant]
     Active Substance: CALCITRIOL
     Indication: HYPERPARATHYROIDISM SECONDARY

REACTIONS (5)
  - Chronic kidney disease-mineral and bone disorder [Unknown]
  - Parathyroid tumour [Unknown]
  - Intentional product use issue [Unknown]
  - Off label use [Unknown]
  - Hip fracture [Unknown]

NARRATIVE: CASE EVENT DATE: 20130406
